FAERS Safety Report 18099682 (Version 1)
Quarter: 2020Q3

REPORT INFORMATION
  Report Type: Report from Study
  Country: DE (occurrence: DE)
  Receive Date: 20200731
  Receipt Date: 20200731
  Transmission Date: 20201103
  Serious: Yes (Hospitalization)
  Sender: FDA-Public Use
  Company Number: DE-EXELIXIS-XL18420031488

PATIENT
  Age: 80 Year
  Sex: Male
  Weight: 74 kg

DRUGS (11)
  1. CABOZANTINIB [Suspect]
     Active Substance: CABOZANTINIB
     Dosage: 20 MG, QD
     Route: 048
  2. SIMVA [Concomitant]
     Active Substance: SIMVASTATIN
     Indication: PROPHYLAXIS
     Dosage: 20 MG, QD
  3. CANDECOR [Concomitant]
     Active Substance: CANDESARTAN CILEXETIL
     Indication: HYPERTENSION
     Dosage: 16 MG, BID
  4. TORASEMID [Concomitant]
     Active Substance: TORSEMIDE
     Indication: HYPERTENSION
     Dosage: 5 MG, QD
  5. TORASEMID [Concomitant]
     Active Substance: TORSEMIDE
     Dosage: 5 MG, DAILY (QD)
  6. BISOPROLOL [Concomitant]
     Active Substance: BISOPROLOL
     Indication: HYPERTENSION
     Dosage: 2.5 MG, DAILY (QD)
     Dates: end: 20200522
  7. SIMVA [Concomitant]
     Active Substance: SIMVASTATIN
     Dosage: 20 MG, DAILY (QD)
  8. CALCIUM VITAMIN D3 [Concomitant]
     Indication: PROPHYLAXIS
     Dosage: 500 MG, DAILY (QD)
     Dates: start: 20200610
  9. CANDECOR [Concomitant]
     Active Substance: CANDESARTAN CILEXETIL
     Dosage: 16 MG, TWICE PER DAY
  10. XGEVA [Concomitant]
     Active Substance: DENOSUMAB
     Indication: METASTATIC BONE DISEASE PROPHYLAXIS
     Dosage: 120 MG, OTHER
     Route: 058
     Dates: start: 20200610
  11. CABOZANTINIB [Suspect]
     Active Substance: CABOZANTINIB
     Indication: RENAL CELL CARCINOMA
     Dosage: 60 MG, QD
     Route: 048
     Dates: start: 20200516, end: 20200623

REACTIONS (12)
  - General physical health deterioration [Recovered/Resolved]
  - Nausea [Recovered/Resolved]
  - Palmar-plantar erythrodysaesthesia syndrome [Recovered/Resolved]
  - Dysphonia [Recovered/Resolved]
  - Decreased appetite [Recovered/Resolved]
  - Gastrooesophageal reflux disease [Not Recovered/Not Resolved]
  - Diarrhoea [Recovered/Resolved]
  - Nausea [Recovered/Resolved]
  - Hyperkalaemia [Recovered/Resolved]
  - Hypertension [Not Recovered/Not Resolved]
  - Sinus bradycardia [Recovered/Resolved]
  - Hypocalcaemia [Recovered/Resolved]

NARRATIVE: CASE EVENT DATE: 20200522
